FAERS Safety Report 8286625-4 (Version None)
Quarter: 2012Q2

REPORT INFORMATION
  Report Type: 
  Country: None (occurrence: None)
  Receive Date: 20120416
  Receipt Date: 20120406
  Transmission Date: 20120825
  Serious: Yes (Hospitalization)
  Sender: FDA-Public Use
  Company Number: DE-JNJFOC-20120303582

PATIENT
  Sex: Male
  Weight: 51 kg

DRUGS (9)
  1. CLOZAPINE [Suspect]
     Indication: ACCIDENTAL EXPOSURE
     Route: 048
     Dates: start: 20120307, end: 20120307
  2. SEROQUEL [Concomitant]
     Route: 048
     Dates: start: 20120307, end: 20120307
  3. ASPIRIN [Suspect]
     Indication: ACCIDENTAL EXPOSURE
     Route: 048
     Dates: start: 20120307, end: 20120307
  4. KEPPRA [Concomitant]
     Indication: PRODUCT USED FOR UNKNOWN INDICATION
     Route: 065
     Dates: start: 20120307, end: 20120307
  5. TRUXAL [Suspect]
     Indication: ACCIDENTAL EXPOSURE
     Route: 048
     Dates: start: 20120307, end: 20120307
  6. RISPERDAL [Suspect]
     Indication: ACCIDENTAL EXPOSURE
     Route: 048
     Dates: start: 20120307, end: 20120307
  7. PROPRANOLOL HCL [Suspect]
     Indication: ACCIDENTAL EXPOSURE
     Route: 048
     Dates: start: 20120307, end: 20120307
  8. SEROQUEL [Concomitant]
     Indication: PRODUCT USED FOR UNKNOWN INDICATION
     Route: 048
  9. KEPPRA [Concomitant]
     Route: 065

REACTIONS (1)
  - ACCIDENTAL EXPOSURE [None]
